FAERS Safety Report 10186644 (Version 1)
Quarter: 2014Q2

REPORT INFORMATION
  Report Type: Spontaneous
  Country: DE (occurrence: DE)
  Receive Date: 20140521
  Receipt Date: 20140521
  Transmission Date: 20141212
  Serious: Yes (Death, Other)
  Sender: FDA-Public Use
  Company Number: DE-BAXTER-2014BAX024056

PATIENT
  Age: 39 Year
  Sex: Female

DRUGS (7)
  1. KIOVIG (5 G/50 ML) [Suspect]
     Indication: IMMUNOSUPPRESSANT DRUG THERAPY
     Route: 042
  2. KIOVIG (5 G/50 ML) [Suspect]
     Indication: OFF LABEL USE
  3. EXITOP [Suspect]
     Indication: IMMUNOSUPPRESSANT DRUG THERAPY
     Route: 065
  4. PREDNISONE [Suspect]
     Indication: IMMUNOSUPPRESSANT DRUG THERAPY
     Route: 042
  5. CYCLOSPORIN A [Suspect]
     Indication: IMMUNOSUPPRESSANT DRUG THERAPY
     Dosage: 5 MG/KG BODY WEIGHT
     Route: 065
  6. DEXAMETHASONE [Suspect]
     Indication: IMMUNOSUPPRESSANT DRUG THERAPY
     Route: 042
  7. RITUXIMAB [Suspect]
     Indication: EPSTEIN-BARR VIRUS INFECTION
     Dosage: 4 TIMES
     Route: 042

REACTIONS (4)
  - Haematochezia [Unknown]
  - Multi-organ failure [Unknown]
  - Gastrointestinal haemorrhage [Unknown]
  - Haemorrhage intracranial [Fatal]
